FAERS Safety Report 4579601-6 (Version None)
Quarter: 2005Q1

REPORT INFORMATION
  Report Type: 
  Country: None (occurrence: None)
  Receive Date: 20050210
  Receipt Date: 20050126
  Transmission Date: 20050727
  Serious: Yes (Death)
  Sender: FDA-Public Use
  Company Number: 2004AL000546

PATIENT
  Age: 28 Year
  Sex: Male

DRUGS (4)
  1. CLONAZEPAM [Suspect]
     Dosage: PO
     Route: 048
  2. OXYCODONE [Suspect]
     Dosage: PO
     Route: 048
  3. PROPOXYPHENE HCL [Suspect]
     Dosage: PO
     Route: 048
  4. BENZTROPINE MESYLATE [Suspect]
     Dosage: PO
     Route: 048

REACTIONS (7)
  - CARDIO-RESPIRATORY ARREST [None]
  - COMPLETED SUICIDE [None]
  - DRUG TOXICITY [None]
  - LUNG DISORDER [None]
  - MULTIPLE DRUG OVERDOSE [None]
  - PNEUMONIA ASPIRATION [None]
  - PULMONARY GRANULOMA [None]
